FAERS Safety Report 19198057 (Version 26)
Quarter: 2025Q2

REPORT INFORMATION
  Report Type: Spontaneous
  Country: US (occurrence: US)
  Receive Date: 20210430
  Receipt Date: 20250517
  Transmission Date: 20250716
  Serious: No
  Sender: DAIICHI
  Company Number: US-DSJP-DSU-2021-113283

PATIENT
  Sex: Female

DRUGS (9)
  1. TURALIO [Interacting]
     Active Substance: PEXIDARTINIB HYDROCHLORIDE
     Indication: Synovitis
     Dosage: 400 MG, BID
     Route: 048
     Dates: start: 20210421
  2. TURALIO [Interacting]
     Active Substance: PEXIDARTINIB HYDROCHLORIDE
     Indication: Giant cell tumour of tendon sheath
     Dosage: UNK UNK, QD
     Route: 048
  3. TURALIO [Interacting]
     Active Substance: PEXIDARTINIB HYDROCHLORIDE
     Dosage: 200 MG, BID
     Route: 048
     Dates: start: 20210421
  4. TURALIO [Interacting]
     Active Substance: PEXIDARTINIB HYDROCHLORIDE
     Dosage: 200 MG, BID
     Route: 048
     Dates: start: 20210421
  5. TURALIO [Interacting]
     Active Substance: PEXIDARTINIB HYDROCHLORIDE
     Dosage: 200 MG, QD
     Route: 048
     Dates: start: 20210421
  6. TURALIO [Interacting]
     Active Substance: PEXIDARTINIB HYDROCHLORIDE
     Dosage: 125 MG, BID
     Route: 048
     Dates: start: 20210421
  7. TURALIO [Interacting]
     Active Substance: PEXIDARTINIB HYDROCHLORIDE
     Dosage: 125 MG, QD
     Route: 048
     Dates: start: 20210421
  8. VENLAFAXINE [Interacting]
     Active Substance: VENLAFAXINE HYDROCHLORIDE
     Indication: Product used for unknown indication
     Route: 065
     Dates: start: 2020
  9. ESTRADIOL [Concomitant]
     Active Substance: ESTRADIOL
     Indication: Product used for unknown indication
     Route: 065

REACTIONS (43)
  - Anxiety [Not Recovered/Not Resolved]
  - Palpitations [Recovered/Resolved]
  - Insomnia [Not Recovered/Not Resolved]
  - Hot flush [Not Recovered/Not Resolved]
  - Feeling abnormal [Not Recovered/Not Resolved]
  - Panic attack [Not Recovered/Not Resolved]
  - Flatulence [Recovered/Resolved]
  - Dyspepsia [Recovered/Resolved]
  - Diarrhoea [Recovered/Resolved]
  - Pain [Recovered/Resolved]
  - Sensitive skin [Recovered/Resolved]
  - General physical health deterioration [Unknown]
  - Stress [Unknown]
  - COVID-19 [Not Recovered/Not Resolved]
  - Illness [Not Recovered/Not Resolved]
  - Swelling [Not Recovered/Not Resolved]
  - Tumour pain [Not Recovered/Not Resolved]
  - Frustration tolerance decreased [Not Recovered/Not Resolved]
  - Palpitations [Not Recovered/Not Resolved]
  - Skin lesion inflammation [Not Recovered/Not Resolved]
  - Adverse drug reaction [Not Recovered/Not Resolved]
  - Drug interaction [Not Recovered/Not Resolved]
  - Nausea [Not Recovered/Not Resolved]
  - Eye swelling [Recovered/Resolved]
  - Periorbital swelling [Not Recovered/Not Resolved]
  - Abdominal pain upper [Not Recovered/Not Resolved]
  - Headache [Recovered/Resolved]
  - Nausea [Recovering/Resolving]
  - Malaise [Recovered/Resolved]
  - Burning sensation [Recovered/Resolved]
  - Hair colour changes [Recovered/Resolved]
  - Decreased appetite [Recovered/Resolved]
  - Photophobia [Not Recovered/Not Resolved]
  - Vision blurred [Recovered/Resolved]
  - Dysgeusia [Recovered/Resolved]
  - Urticaria [Recovered/Resolved]
  - Alopecia [Not Recovered/Not Resolved]
  - Fatigue [Not Recovered/Not Resolved]
  - Thermal burn [Not Recovered/Not Resolved]
  - Drug interaction [Recovered/Resolved]
  - Incorrect dose administered [Unknown]
  - Off label use [Recovered/Resolved]
  - Malaise [Not Recovered/Not Resolved]

NARRATIVE: CASE EVENT DATE: 20210101
